FAERS Safety Report 8309415-2 (Version None)
Quarter: 2012Q2

REPORT INFORMATION
  Report Type: 
  Country: None (occurrence: None)
  Receive Date: 20120424
  Receipt Date: 20120424
  Transmission Date: 20120825
  Serious: No
  Sender: FDA-Public Use
  Company Number: None

PATIENT
  Sex: Male

DRUGS (2)
  1. EGRIFTA [Suspect]
     Indication: LIPODYSTROPHY ACQUIRED
     Dosage: 2MG QD SQ
     Route: 058
     Dates: start: 20120418
  2. EGRIFTA [Suspect]
     Indication: LIPODYSTROPHY ACQUIRED
     Dosage: 2MG QD SQ
     Route: 058
     Dates: start: 20120419

REACTIONS (2)
  - HEADACHE [None]
  - HOT FLUSH [None]
